FAERS Safety Report 9884389 (Version 1)
Quarter: 2014Q1

REPORT INFORMATION
  Report Type: Spontaneous
  Country: US (occurrence: US)
  Receive Date: 20140210
  Receipt Date: 20140210
  Transmission Date: 20141002
  Serious: No
  Sender: FDA-Public Use
  Company Number: US-ALLERGAN-1319145US

PATIENT
  Age: 77 Year
  Sex: Female
  Weight: 48.53 kg

DRUGS (3)
  1. BOTOX [Suspect]
     Indication: MIGRAINE
     Dosage: UNK, SINGLE
     Route: 030
     Dates: start: 20131105, end: 20131105
  2. CYMBALTA [Concomitant]
     Indication: HEADACHE
     Dosage: 60 MG, QD
     Route: 048
     Dates: start: 201309
  3. CYMBALTA [Concomitant]
     Dosage: 30 MG, QD
     Route: 048
     Dates: start: 201308, end: 201309

REACTIONS (4)
  - Dysphagia [Recovering/Resolving]
  - Neck pain [Recovering/Resolving]
  - Headache [Not Recovered/Not Resolved]
  - Muscular weakness [Recovering/Resolving]
